FAERS Safety Report 16024066 (Version 1)
Quarter: 2019Q1

REPORT INFORMATION
  Report Type: Report from Study
  Country: RU (occurrence: RU)
  Receive Date: 20190301
  Receipt Date: 20190301
  Transmission Date: 20190418
  Serious: Yes (Other)
  Sender: FDA-Public Use
  Company Number: RU-ELI_LILLY_AND_COMPANY-RU201812011806

PATIENT
  Age: 70 Year
  Sex: Female

DRUGS (2)
  1. TERIPARATIDE [Suspect]
     Active Substance: TERIPARATIDE
     Dosage: UNK, UNKNOWN
     Route: 065
  2. TERIPARATIDE [Suspect]
     Active Substance: TERIPARATIDE
     Indication: PRODUCT USED FOR UNKNOWN INDICATION
     Dosage: UNK, UNKNOWN
     Route: 065
     Dates: start: 20181206, end: 20190101

REACTIONS (9)
  - Spinal disorder [Unknown]
  - Feeling abnormal [Unknown]
  - Blood pressure decreased [Unknown]
  - Hallucination [Unknown]
  - Angina pectoris [Unknown]
  - Injection site injury [Unknown]
  - Myocardial infarction [Unknown]
  - Fall [Unknown]
  - Blood pressure decreased [Unknown]

NARRATIVE: CASE EVENT DATE: 20181215
